FAERS Safety Report 12775852 (Version 1)
Quarter: 2016Q3

REPORT INFORMATION
  Report Type: Spontaneous
  Country: JP (occurrence: JP)
  Receive Date: 20160923
  Receipt Date: 20160923
  Transmission Date: 20161109
  Serious: Yes (Hospitalization)
  Sender: FDA-Public Use
  Company Number: JP-009507513-1609JPN008272

PATIENT

DRUGS (2)
  1. SOVALDI [Suspect]
     Active Substance: SOFOSBUVIR
     Dosage: DAILY DOSE UNKNOWN
     Route: 048
  2. RIBAVIRIN. [Suspect]
     Active Substance: RIBAVIRIN
     Dosage: DAILY DOSE UNKNOWN
     Route: 048

REACTIONS (5)
  - Haemoglobin decreased [Unknown]
  - Adverse reaction [Unknown]
  - Nausea [Unknown]
  - Oropharyngeal pain [Unknown]
  - Pruritus [Unknown]
